FAERS Safety Report 5976031-7 (Version None)
Quarter: 2008Q4

REPORT INFORMATION
  Report Type: 
  Country: None (occurrence: None)
  Receive Date: 20081202
  Receipt Date: 20081120
  Transmission Date: 20090506
  Serious: Yes (Congenital Anomaly)
  Sender: FDA-Public Use
  Company Number: NL-ROCHE-599254

PATIENT
  Sex: Male
  Weight: 3 kg

DRUGS (3)
  1. ROACCUTANE [Suspect]
     Indication: ACNE
     Dosage: DOSING FREQ: DAILY; STOP DATE: 1 MARCH 2007
     Dates: start: 20070101
  2. ROACCUTANE [Suspect]
     Dosage: DOSING FREQ: DAILY
     Dates: start: 20070307, end: 20070323
  3. DIANE-35 [Concomitant]
     Indication: CONTRACEPTION
     Dosage: DOSING FREQ:DAILY.
     Dates: end: 20070323

REACTIONS (2)
  - ANOMALY OF EXTERNAL EAR CONGENITAL [None]
  - EXTERNAL AUDITORY CANAL ATRESIA [None]
